FAERS Safety Report 15215290 (Version 1)
Quarter: 2018Q3

REPORT INFORMATION
  Report Type: Spontaneous
  Country: FR (occurrence: FR)
  Receive Date: 20180730
  Receipt Date: 20180730
  Transmission Date: 20181010
  Serious: Yes (Death)
  Sender: FDA-Public Use
  Company Number: FR-BAXTER-2018BAX020485

PATIENT
  Age: 67 Year
  Sex: Female

DRUGS (2)
  1. HOLOXAN 2000 MG, POUDRE POUR USAGE PARENT?RAL [Suspect]
     Active Substance: IFOSFAMIDE
     Indication: SARCOMA
     Route: 042
     Dates: start: 20131127, end: 20140108
  2. DOXORUBICINE [Suspect]
     Active Substance: DOXORUBICIN
     Indication: SARCOMA
     Route: 042
     Dates: start: 20131127, end: 20140108

REACTIONS (3)
  - Thrombocytopenia [Fatal]
  - Haemoptysis [Fatal]
  - Anaemia [Fatal]

NARRATIVE: CASE EVENT DATE: 20140117
